FAERS Safety Report 6772020-3 (Version None)
Quarter: 2010Q2

REPORT INFORMATION
  Report Type: 
  Country: None (occurrence: None)
  Receive Date: 20100616
  Receipt Date: 20091127
  Transmission Date: 20101027
  Serious: No
  Sender: FDA-Public Use
  Company Number: US-ASTRAZENECA-2009SE23232

PATIENT
  Sex: Female

DRUGS (2)
  1. RHINOCORT [Suspect]
     Indication: EXOSTOSIS
     Dosage: 4 SPRAYS DAILY
     Route: 045
     Dates: start: 20090930
  2. RHINOCORT [Suspect]
     Indication: NASAL CONGESTION
     Dosage: 4 SPRAYS DAILY
     Route: 045
     Dates: start: 20090930

REACTIONS (3)
  - DISEASE PROGRESSION [None]
  - SINUS HEADACHE [None]
  - SINUSITIS [None]
